FAERS Safety Report 12850576 (Version 2)
Quarter: 2016Q4

REPORT INFORMATION
  Report Type: Report from Study
  Country: CA (occurrence: CA)
  Receive Date: 20161014
  Receipt Date: 20161104
  Transmission Date: 20170207
  Serious: Yes (Other)
  Sender: FDA-Public Use
  Company Number: CA-REGENERON PHARMACEUTICALS, INC.-2016-22765

PATIENT

DRUGS (7)
  1. EYLEA [Suspect]
     Active Substance: AFLIBERCEPT
     Dosage: LEFT OR RIGHT EYE
     Route: 031
     Dates: start: 20160816, end: 20160816
  2. EYLEA [Suspect]
     Active Substance: AFLIBERCEPT
     Dosage: LEFT OR RIGHT EYE
     Route: 031
     Dates: start: 20160822, end: 20160822
  3. EYLEA [Suspect]
     Active Substance: AFLIBERCEPT
     Indication: DIABETIC RETINAL OEDEMA
     Dosage: LAST DOSE PRIOR TO EVENT NOT REPORTED
     Route: 031
  4. EYLEA [Suspect]
     Active Substance: AFLIBERCEPT
     Dosage: LEFT OR RIGHT EYE
     Route: 031
     Dates: start: 20160920, end: 20160920
  5. EYLEA [Suspect]
     Active Substance: AFLIBERCEPT
     Dosage: LEFT OR RIGHT EYE
     Route: 031
     Dates: start: 20160721, end: 20160721
  6. EYLEA [Suspect]
     Active Substance: AFLIBERCEPT
     Dosage: LEFT OR RIGHT EYE
     Route: 031
     Dates: start: 20160927, end: 20160927
  7. EYLEA [Suspect]
     Active Substance: AFLIBERCEPT
     Dosage: LEFT OR RIGHT EYE
     Route: 031
     Dates: start: 20160714, end: 20160714

REACTIONS (2)
  - Retinal vascular disorder [Unknown]
  - Retinal haemorrhage [Unknown]
